FAERS Safety Report 7910847 (Version 15)
Quarter: 2012Q4

REPORT INFORMATION
  Report Type: 
  Country: CA (occurrence: CA)
  Receive Date: 20110422
  Receipt Date: 20121109
  Transmission Date: 20130627
  Serious: Yes (Hospitalization, Other)
  Sender: FDA-Public Use
  Company Number: PHHY2011CA31257

PATIENT
  Sex: Male

DRUGS (2)
  1. SANDOSTATIN LAR [Suspect]
     Indication: PANCREATITIS CHRONIC
     Dosage: 30 mg, every 4 weeks
     Route: 030
     Dates: start: 20070614
  2. SANDOSTATIN LAR [Suspect]
     Dosage: 30 mg, QMO
     Route: 030
     Dates: end: 20120120

REACTIONS (11)
  - Leukaemia [Unknown]
  - Blood pressure decreased [Unknown]
  - Gout [Unknown]
  - Oedema peripheral [Unknown]
  - Intervertebral disc disorder [Unknown]
  - Pancreatitis [Unknown]
  - Hyperacusis [Unknown]
  - Malaise [Unknown]
  - Blood glucose abnormal [Unknown]
  - Abdominal pain upper [Unknown]
  - Fatigue [Unknown]
